FAERS Safety Report 23200159 (Version 1)
Quarter: 2023Q4

REPORT INFORMATION
  Report Type: Spontaneous
  Country: US (occurrence: US)
  Receive Date: 20231118
  Receipt Date: 20231118
  Transmission Date: 20240110
  Serious: Yes (Hospitalization, Other)
  Sender: FDA-Public Use
  Company Number: US-UNITED THERAPEUTICS-UNT-2023-032375

PATIENT
  Sex: Female

DRUGS (1)
  1. UNITUXIN [Suspect]
     Active Substance: DINUTUXIMAB
     Indication: Product used for unknown indication
     Dosage: UNK, CYCLICAL (CYCLE 2)
     Route: 041
     Dates: end: 20231104

REACTIONS (3)
  - Urinary retention [Recovering/Resolving]
  - Wheezing [Unknown]
  - Cough [Unknown]
